FAERS Safety Report 13878028 (Version 2)
Quarter: 2017Q3

REPORT INFORMATION
  Report Type: Spontaneous
  Country: US (occurrence: US)
  Receive Date: 20170817
  Receipt Date: 20170831
  Transmission Date: 20171127
  Serious: No
  Sender: FDA-Public Use
  Company Number: US-TEVA-796722ACC

PATIENT
  Sex: Male

DRUGS (1)
  1. COPAXONE [Suspect]
     Active Substance: GLATIRAMER ACETATE

REACTIONS (3)
  - Chills [Recovered/Resolved]
  - Myalgia [Recovered/Resolved]
  - Tremor [Recovered/Resolved]
